FAERS Safety Report 10362730 (Version 1)
Quarter: 2014Q3

REPORT INFORMATION
  Report Type: Spontaneous
  Country: US (occurrence: None)
  Receive Date: 20140804
  Receipt Date: 20140804
  Transmission Date: 20150326
  Serious: Yes (Hospitalization)
  Sender: FDA-Public Use
  Company Number: None

PATIENT
  Age: 68 Year
  Sex: Female
  Weight: 61 kg

DRUGS (2)
  1. OXYCODONE/ACETAMINOPHEN 5/325 [Suspect]
     Active Substance: ACETAMINOPHEN\OXYCODONE\OXYCODONE HYDROCHLORIDE
     Indication: PROCEDURAL PAIN
     Dosage: ONE TABLET PRN/AS NEEDED ORAL?APPROXIMATELY 3-4 DAYS
     Route: 048
  2. MULTIVITAMIN [Concomitant]
     Active Substance: VITAMINS

REACTIONS (3)
  - Diverticulum [None]
  - Constipation [None]
  - Colitis ischaemic [None]

NARRATIVE: CASE EVENT DATE: 20140309
